FAERS Safety Report 25024525 (Version 2)
Quarter: 2025Q2

REPORT INFORMATION
  Report Type: Spontaneous
  Country: US (occurrence: US)
  Receive Date: 20250228
  Receipt Date: 20250429
  Transmission Date: 20250717
  Serious: Yes (Other)
  Sender: KYOWA
  Company Number: US-KYOWAKIRIN-2025KK003640

PATIENT

DRUGS (8)
  1. CRYSVITA [Suspect]
     Active Substance: BUROSUMAB-TWZA
     Indication: Product used for unknown indication
     Dosage: 45 MG, 1X/4 WEEKS (0.5 MG/KG) BRIDGE DOSE OF 15 MG IN 03/2024
     Route: 058
     Dates: start: 20201215, end: 202404
  2. CRYSVITA [Suspect]
     Active Substance: BUROSUMAB-TWZA
     Dosage: 90 MG, 1X/4 WEEKS (DOSE INCREASED  1 MG/KG)
     Route: 058
     Dates: start: 202404
  3. CRYSVITA [Suspect]
     Active Substance: BUROSUMAB-TWZA
     Dosage: 45 MG, 1X/4 WEEKS (0.5 MG/KG)
     Route: 058
     Dates: start: 202501
  4. CRYSVITA [Concomitant]
     Active Substance: BUROSUMAB-TWZA
     Indication: Product used for unknown indication
     Dosage: 90 MG, 1X/4 WEEKS (INJECT 9 ML)
     Route: 058
     Dates: start: 20240220, end: 20250214
  5. NORVASC [Concomitant]
     Active Substance: AMLODIPINE BESYLATE
     Indication: Product used for unknown indication
     Dosage: 5 MG, QD (DAILY WITH FOOD)
     Route: 048
     Dates: start: 20230810
  6. AMOXIL [AMOXICILLIN SODIUM] [Concomitant]
     Indication: Product used for unknown indication
     Route: 065
     Dates: start: 20230915
  7. SENSIPAR [Concomitant]
     Active Substance: CINACALCET HYDROCHLORIDE
     Indication: Product used for unknown indication
     Route: 065
     Dates: start: 20250206
  8. PRINIVIL [Concomitant]
     Active Substance: LISINOPRIL
     Indication: Product used for unknown indication
     Dosage: 40 MG, QD
     Route: 048
     Dates: start: 20210910

REACTIONS (2)
  - Renal neoplasm [Unknown]
  - Product use issue [Unknown]

NARRATIVE: CASE EVENT DATE: 20201201
